FAERS Safety Report 23870675 (Version 1)
Quarter: 2024Q2

REPORT INFORMATION
  Report Type: Spontaneous
  Country: PR (occurrence: PR)
  Receive Date: 20240518
  Receipt Date: 20240518
  Transmission Date: 20240716
  Serious: Yes (Other)
  Sender: FDA-Public Use
  Company Number: PR-ABBVIE-5764093

PATIENT
  Sex: Male

DRUGS (1)
  1. HUMIRA [Suspect]
     Active Substance: ADALIMUMAB
     Indication: Neoplasm malignant
     Route: 058

REACTIONS (11)
  - Carcinoid syndrome [Unknown]
  - Off label use [Unknown]
  - Diarrhoea [Unknown]
  - Inflammation [Unknown]
  - Vomiting [Unknown]
  - Fatigue [Unknown]
  - Nausea [Unknown]
  - Erythema [Unknown]
  - Pain [Unknown]
  - Peripheral swelling [Unknown]
  - Swelling face [Unknown]

NARRATIVE: CASE EVENT DATE: 20230101
